FAERS Safety Report 19288413 (Version 1)
Quarter: 2021Q2

REPORT INFORMATION
  Report Type: Spontaneous
  Country: US (occurrence: US)
  Receive Date: 20210522
  Receipt Date: 20210522
  Transmission Date: 20210717
  Serious: No
  Sender: FDA-Public Use
  Company Number: US-SA-2021SA165348

PATIENT
  Age: 68 Year
  Sex: Female

DRUGS (2)
  1. LANTUS [Suspect]
     Active Substance: INSULIN GLARGINE
     Dosage: 3 IU, QD
     Route: 065
  2. LANTUS [Suspect]
     Active Substance: INSULIN GLARGINE
     Indication: TYPE 2 DIABETES MELLITUS
     Dosage: 20 IU, QD
     Route: 065
     Dates: start: 202012

REACTIONS (3)
  - Incorrect dose administered by device [Unknown]
  - Injection site bruising [Unknown]
  - Device issue [Unknown]
